FAERS Safety Report 18880094 (Version 1)
Quarter: 2021Q1

REPORT INFORMATION
  Report Type: Spontaneous
  Country: FR (occurrence: FR)
  Receive Date: 20210211
  Receipt Date: 20210211
  Transmission Date: 20210420
  Serious: Yes (Hospitalization, Other)
  Sender: FDA-Public Use
  Company Number: FR-SA-2021SA035024

PATIENT
  Age: 69 Year
  Sex: Female
  Weight: 73.5 kg

DRUGS (2)
  1. ENOXAPARIN SODIUM. [Suspect]
     Active Substance: ENOXAPARIN SODIUM
     Indication: ATRIAL FIBRILLATION
     Dosage: 16000 IU, QD
     Route: 058
     Dates: start: 20201125, end: 20201210
  2. COUMADIN [Interacting]
     Active Substance: WARFARIN SODIUM
     Indication: ATRIAL FIBRILLATION
     Route: 048
     Dates: start: 20201125, end: 20201210

REACTIONS (6)
  - Cerebellar syndrome [Recovered/Resolved]
  - Headache [Recovered/Resolved]
  - Extradural haematoma [Recovered/Resolved]
  - Drug interaction [Unknown]
  - Photophobia [Recovered/Resolved]
  - Phonophobia [Recovered/Resolved]

NARRATIVE: CASE EVENT DATE: 20201125
